FAERS Safety Report 8155342 (Version 7)
Quarter: 2013Q2

REPORT INFORMATION
  Report Type: Report from Study
  Country: DE (occurrence: DE)
  Receive Date: 20110926
  Receipt Date: 20130528
  Transmission Date: 20140414
  Serious: Yes (Hospitalization)
  Sender: FDA-Public Use
  Company Number: DE-JNJFOC-20110907411

PATIENT
  Age: 10 Year
  Sex: Male
  Weight: 33 kg

DRUGS (7)
  1. REMICADE [Suspect]
     Indication: CROHN^S DISEASE
     Route: 042
     Dates: start: 20080320, end: 20110722
  2. AZATHIOPRINE [Concomitant]
  3. DESLORATADINE [Concomitant]
  4. VIANI FORTE [Concomitant]
  5. FLUTICASONE [Concomitant]
  6. SALMETEROL [Concomitant]
  7. RIMEXOLONE [Concomitant]

REACTIONS (1)
  - Encopresis [Not Recovered/Not Resolved]
